FAERS Safety Report 12990690 (Version 1)
Quarter: 2016Q4

REPORT INFORMATION
  Report Type: Spontaneous
  Country: US (occurrence: US)
  Receive Date: 20161201
  Receipt Date: 20161201
  Transmission Date: 20170207
  Serious: Yes (Hospitalization, Other)
  Sender: FDA-Public Use
  Company Number: US-JNJFOC-20161129671

PATIENT
  Age: 27 Year
  Sex: Male

DRUGS (12)
  1. ADALIMUMAB [Suspect]
     Active Substance: ADALIMUMAB
     Indication: CROHN^S DISEASE
     Route: 065
  2. INFLIXIMAB, RECOMBINANT [Suspect]
     Active Substance: INFLIXIMAB
     Indication: CROHN^S DISEASE
     Route: 042
  3. CICLOSPORIN [Suspect]
     Active Substance: CYCLOSPORINE
     Indication: CROHN^S DISEASE
     Dosage: IN THE MORNING
     Route: 065
  4. ADALIMUMAB [Suspect]
     Active Substance: ADALIMUMAB
     Indication: CROHN^S DISEASE
     Route: 065
  5. INFLIXIMAB, RECOMBINANT [Suspect]
     Active Substance: INFLIXIMAB
     Indication: CROHN^S DISEASE
     Route: 042
  6. CERTOLIZUMAB PEGOL [Suspect]
     Active Substance: CERTOLIZUMAB PEGOL
     Indication: CROHN^S DISEASE
     Route: 065
  7. PREDNISONE. [Concomitant]
     Active Substance: PREDNISONE
     Indication: CROHN^S DISEASE
     Route: 065
     Dates: start: 2002
  8. INFLIXIMAB, RECOMBINANT [Suspect]
     Active Substance: INFLIXIMAB
     Indication: CROHN^S DISEASE
     Route: 042
  9. CICLOSPORIN [Suspect]
     Active Substance: CYCLOSPORINE
     Indication: CROHN^S DISEASE
     Dosage: IN THE EVENING
     Route: 065
  10. PREDNISONE. [Concomitant]
     Active Substance: PREDNISONE
     Indication: CROHN^S DISEASE
     Route: 065
  11. INFLIXIMAB, RECOMBINANT [Suspect]
     Active Substance: INFLIXIMAB
     Indication: CROHN^S DISEASE
     Route: 042
  12. ADALIMUMAB [Suspect]
     Active Substance: ADALIMUMAB
     Indication: CROHN^S DISEASE
     Route: 065

REACTIONS (4)
  - Mycobacterium marinum infection [Recovered/Resolved]
  - Product use issue [Unknown]
  - Drug level below therapeutic [Unknown]
  - Off label use [Unknown]
